FAERS Safety Report 23652422 (Version 1)
Quarter: 2024Q1

REPORT INFORMATION
  Report Type: Spontaneous
  Country: GB (occurrence: GB)
  Receive Date: 20240320
  Receipt Date: 20240320
  Transmission Date: 20240409
  Serious: Yes (Other)
  Sender: FDA-Public Use
  Company Number: None

PATIENT
  Age: 75 Year
  Sex: Male
  Weight: 98 kg

DRUGS (8)
  1. EZETIMIBE [Suspect]
     Active Substance: EZETIMIBE
     Route: 065
  2. ZOPICLONE [Concomitant]
     Active Substance: ZOPICLONE
     Dosage: TIME INTERVAL: AS NECESSARY: TAKE ONE TABLET AT NIGHT WHEN REQUIRED. DO NOT ..., DURATION: 28 DAYS
     Dates: start: 20231213, end: 20240110
  3. SILDENAFIL [Concomitant]
     Active Substance: SILDENAFIL
     Dosage: TO BE TAKEN AS DIRECTED
     Dates: start: 20200227
  4. UNSPECIFIED INGREDIENT [Concomitant]
     Active Substance: UNSPECIFIED INGREDIENT
     Dosage: SAFE DISPOSAL (SHARPS BIN)
     Dates: start: 20231005
  5. UNSPECIFIED INGREDIENT [Concomitant]
     Active Substance: UNSPECIFIED INGREDIENT
     Dosage: USE DAILY FOR EYES AS DIRECTED
     Dates: start: 20240221
  6. UNSPECIFIED INGREDIENT [Concomitant]
     Active Substance: UNSPECIFIED INGREDIENT
     Dosage: USE AS DIRECTED
     Dates: start: 20231005
  7. MIRABEGRON [Concomitant]
     Active Substance: MIRABEGRON
     Indication: Micturition urgency
     Dosage: TO REDUCE BLADDER URGE
     Dates: start: 20210616
  8. METFORMIN HYDROCHLORIDE [Concomitant]
     Active Substance: METFORMIN HYDROCHLORIDE
     Dosage: WITH MEALS (METFORMIN T...
     Dates: start: 20220407

REACTIONS (2)
  - Asthenia [Unknown]
  - Muscular weakness [Recovered/Resolved]
